FAERS Safety Report 23393443 (Version 1)
Quarter: 2024Q1

REPORT INFORMATION
  Report Type: Spontaneous
  Country: CN (occurrence: CN)
  Receive Date: 20240111
  Receipt Date: 20240111
  Transmission Date: 20240410
  Serious: Yes (Hospitalization)
  Sender: FDA-Public Use
  Company Number: CN-PFIZER INC-PV202400002600

PATIENT
  Age: 83 Year
  Sex: Female

DRUGS (1)
  1. ZYVOX [Suspect]
     Active Substance: LINEZOLID
     Indication: Infection
     Dosage: 600 MG, 2X/DAY
     Route: 048
     Dates: start: 20231225, end: 20231230

REACTIONS (4)
  - Dermatitis allergic [Recovered/Resolved]
  - Haemorrhage subcutaneous [Unknown]
  - Nausea [Recovered/Resolved]
  - Vomiting [Recovered/Resolved]

NARRATIVE: CASE EVENT DATE: 20231228
